FAERS Safety Report 13868622 (Version 1)
Quarter: 2017Q3

REPORT INFORMATION
  Report Type: Spontaneous
  Country: US (occurrence: US)
  Receive Date: 20170815
  Receipt Date: 20170815
  Transmission Date: 20171127
  Serious: No
  Sender: FDA-Public Use
  Company Number: US-PFIZER INC-2017310509

PATIENT

DRUGS (1)
  1. MARCAINE WITH EPINEPHRINE [Suspect]
     Active Substance: BUPIVACAINE HYDROCHLORIDE\EPINEPHRINE BITARTRATE
     Dosage: UNK (2.5 MG IN 1 ML/0.0091 MG IN 1 ML)

REACTIONS (1)
  - Product label confusion [Unknown]
